FAERS Safety Report 12710973 (Version 1)
Quarter: 2016Q3

REPORT INFORMATION
  Report Type: Spontaneous
  Country: CL (occurrence: CL)
  Receive Date: 20160902
  Receipt Date: 20160902
  Transmission Date: 20161109
  Serious: Yes (Other)
  Sender: FDA-Public Use
  Company Number: CL-SA-2016SA157987

PATIENT
  Sex: Female

DRUGS (1)
  1. CLEXANE [Suspect]
     Active Substance: ENOXAPARIN SODIUM
     Indication: ARTERIAL THROMBOSIS
     Route: 065

REACTIONS (4)
  - Paraparesis [Unknown]
  - Off label use [Unknown]
  - Pain [Unknown]
  - Electric shock [Unknown]
